FAERS Safety Report 10487058 (Version 1)
Quarter: 2014Q3

REPORT INFORMATION
  Report Type: Spontaneous
  Country: US (occurrence: None)
  Receive Date: 20140930
  Receipt Date: 20140930
  Transmission Date: 20150326
  Serious: Yes (Hospitalization)
  Sender: FDA-Public Use
  Company Number: None

PATIENT
  Age: 55 Year
  Sex: Female
  Weight: 64.7 kg

DRUGS (23)
  1. GABAPENTIN. [Concomitant]
     Active Substance: GABAPENTIN
  2. LEVOTHYROXINE [Concomitant]
     Active Substance: LEVOTHYROXINE
  3. ONDANSETRON [Concomitant]
     Active Substance: ONDANSETRON
  4. PANTOPTRAZOLE [Concomitant]
  5. RIBAVIRIN. [Concomitant]
     Active Substance: RIBAVIRIN
  6. SIMEPREVIR [Suspect]
     Active Substance: SIMEPREVIR
     Indication: HEPATITIS C
     Route: 048
     Dates: start: 20140409, end: 20140702
  7. ZYRTEC [Concomitant]
     Active Substance: CETIRIZINE HYDROCHLORIDE
  8. TACROLIMUS. [Concomitant]
     Active Substance: TACROLIMUS
  9. LASIX [Concomitant]
     Active Substance: FUROSEMIDE
  10. TRMADOL [Concomitant]
  11. NADOLOL. [Concomitant]
     Active Substance: NADOLOL
  12. RIFAXIMIN [Concomitant]
     Active Substance: RIFAXIMIN
  13. SPIRIVA [Concomitant]
     Active Substance: TIOTROPIUM BROMIDE MONOHYDRATE
  14. ADVAIR HFA [Concomitant]
     Active Substance: FLUTICASONE PROPIONATE\SALMETEROL XINAFOATE
  15. INSULIN ASPART [Concomitant]
     Active Substance: INSULIN ASPART
  16. LACTULOSE. [Concomitant]
     Active Substance: LACTULOSE
  17. SOVALDI [Suspect]
     Active Substance: SOFOSBUVIR
     Indication: HEPATITIS C
     Route: 048
     Dates: start: 20140409, end: 20140702
  18. BUPROPION [Concomitant]
     Active Substance: BUPROPION
  19. CHOLECALCIFEROL [Concomitant]
     Active Substance: CHOLECALCIFEROL
  20. ALDACTONE [Concomitant]
     Active Substance: SPIRONOLACTONE
  21. CYCLOSPORINE. [Concomitant]
     Active Substance: CYCLOSPORINE
  22. INSULIN GLARGINE [Concomitant]
     Active Substance: INSULIN GLARGINE
  23. ALBUTEROL. [Concomitant]
     Active Substance: ALBUTEROL

REACTIONS (3)
  - Renal failure acute [None]
  - Dehydration [None]
  - Feeling abnormal [None]

NARRATIVE: CASE EVENT DATE: 20140506
